FAERS Safety Report 23125016 (Version 1)
Quarter: 2023Q4

REPORT INFORMATION
  Report Type: Spontaneous
  Country: US (occurrence: US)
  Receive Date: 20231030
  Receipt Date: 20231030
  Transmission Date: 20240110
  Serious: No
  Sender: FDA-Public Use
  Company Number: US-EPIHEALTH-2023-US-004742

PATIENT
  Age: 42 Year
  Sex: Female
  Weight: 86.18 kg

DRUGS (2)
  1. RHOFADE [Suspect]
     Active Substance: OXYMETAZOLINE HYDROCHLORIDE
     Indication: Rosacea
     Dosage: ONE TIME A DAY
     Route: 061
     Dates: start: 20230220, end: 20230222
  2. VITAMINS [Concomitant]
     Active Substance: VITAMINS
     Route: 048

REACTIONS (8)
  - Hypersensitivity [Recovered/Resolved]
  - Application site pain [Recovered/Resolved]
  - Urticaria [Recovered/Resolved]
  - Skin warm [Recovered/Resolved]
  - Application site pruritus [Recovering/Resolving]
  - Intentional product misuse [Recovered/Resolved]
  - Expired product administered [Recovered/Resolved]
  - Application site dryness [Recovering/Resolving]

NARRATIVE: CASE EVENT DATE: 20230220
